FAERS Safety Report 5728571-3 (Version None)
Quarter: 2008Q2

REPORT INFORMATION
  Report Type: 
  Country: None (occurrence: None)
  Receive Date: 20080430
  Receipt Date: 20080421
  Transmission Date: 20081010
  Serious: Yes (Hospitalization)
  Sender: FDA-Public Use
  Company Number: 2008-00699

PATIENT
  Age: 73 Year
  Sex: Male
  Weight: 61 kg

DRUGS (12)
  1. VELCADE [Suspect]
     Indication: MULTIPLE MYELOMA
     Dosage: 2 MG, INTRAVENOUS
     Route: 042
     Dates: start: 20080125, end: 20080228
  2. MAGNESIUM OXIDE (MAGNESIUM OXIDE) [Concomitant]
  3. SENNA (SENNA) [Concomitant]
  4. HEPARIN [Concomitant]
  5. DEXAMETHASONE SODIUM PHOSPHATE [Concomitant]
  6. CEFEPIME HYDROCHLORIDE (CEFEPIME HYDROCHLORIDE) [Concomitant]
  7. CEFTRIAXONE SODIUM (CEFTRIAXONE SODIUM) [Concomitant]
  8. ZOLPIDEM TARTRATE [Concomitant]
  9. LEVOFLOXACIN [Concomitant]
  10. ITRACONAZOLE [Concomitant]
  11. LOXOPROFEN SODIUM (LOXOPROFEN SODIUM) [Concomitant]
  12. OMEPRAZOLE [Concomitant]

REACTIONS (8)
  - ABDOMINAL DISCOMFORT [None]
  - ABDOMINAL DISTENSION [None]
  - ANORECTAL DISORDER [None]
  - BLADDER DISORDER [None]
  - DEFAECATION URGENCY [None]
  - MALAISE [None]
  - ORTHOSTATIC HYPOTENSION [None]
  - URINARY RETENTION [None]
